FAERS Safety Report 6095148-2 (Version None)
Quarter: 2009Q1

REPORT INFORMATION
  Report Type: 
  Country: None (occurrence: None)
  Receive Date: 20090227
  Receipt Date: 20080130
  Transmission Date: 20090719
  Serious: No
  Sender: FDA-Public Use
  Company Number: A0706389A

PATIENT
  Age: 29 Year
  Sex: Female

DRUGS (4)
  1. LAMICTAL [Suspect]
     Indication: BIPOLAR DISORDER
     Dosage: 200MG PER DAY
     Route: 048
     Dates: start: 20071101
  2. LITHIUM [Suspect]
     Indication: BIPOLAR DISORDER
     Dosage: 450MG PER DAY
     Route: 048
     Dates: start: 20080116, end: 20080128
  3. CLONAZEPAM [Concomitant]
  4. HYDROCODONE [Concomitant]

REACTIONS (4)
  - DRUG INEFFECTIVE [None]
  - PRURITUS [None]
  - RASH [None]
  - SKIN TIGHTNESS [None]
